FAERS Safety Report 14225223 (Version 10)
Quarter: 2022Q2

REPORT INFORMATION
  Report Type: Spontaneous
  Country: DK (occurrence: DK)
  Receive Date: 20171127
  Receipt Date: 20220410
  Transmission Date: 20220721
  Serious: Yes (Hospitalization, Disabling, Other)
  Sender: FDA-Public Use
  Company Number: PHHY2017DK174280

PATIENT
  Age: 73 Year
  Sex: Male

DRUGS (2)
  1. MAXIDEX [Suspect]
     Active Substance: DEXAMETHASONE
     Indication: Iridocyclitis
     Dosage: 6 DRP, QD INITIALLY THEN REDUCTION WITH ONE GTT/DAY
     Route: 050
     Dates: start: 20170119, end: 20170223
  2. PREDNISOLONE [Suspect]
     Active Substance: PREDNISOLONE
     Indication: Iridocyclitis
     Dosage: 1 DOSAGE FORM, QHS (AT NIGHT IN RIGHT EYE)
     Route: 050
     Dates: start: 20170119, end: 20170223

REACTIONS (7)
  - Eye disorder [Not Recovered/Not Resolved]
  - Corneal lesion [Recovered/Resolved]
  - Photopsia [Recovered/Resolved]
  - Blindness [Not Recovered/Not Resolved]
  - Keratitis [Unknown]
  - Lacrimation increased [Recovered/Resolved]
  - Eye pain [Recovered/Resolved]

NARRATIVE: CASE EVENT DATE: 20170201
